FAERS Safety Report 22011506 (Version 4)
Quarter: 2023Q2

REPORT INFORMATION
  Report Type: Spontaneous
  Country: US (occurrence: US)
  Receive Date: 20230220
  Receipt Date: 20230419
  Transmission Date: 20230721
  Serious: Yes (Other)
  Sender: FDA-Public Use
  Company Number: US-BoehringerIngelheim-2023-BI-219142

PATIENT
  Weight: 128.02 kg

DRUGS (13)
  1. JARDIANCE [Suspect]
     Active Substance: EMPAGLIFLOZIN
     Indication: Type 2 diabetes mellitus
     Route: 048
  2. JARDIANCE [Suspect]
     Active Substance: EMPAGLIFLOZIN
     Indication: Hyperglycaemia
  3. ZYRTEC [Concomitant]
     Active Substance: CETIRIZINE HYDROCHLORIDE
     Indication: Product used for unknown indication
     Route: 048
  4. METFORMIN [Concomitant]
     Active Substance: METFORMIN HYDROCHLORIDE
     Indication: Product used for unknown indication
     Route: 048
  5. ERGOCALCIFEROL [Concomitant]
     Active Substance: ERGOCALCIFEROL
     Indication: Product used for unknown indication
     Dosage: (50,000 UNIT)
     Route: 048
  6. POLYETHYLENE GLYCOL 3350 [Concomitant]
     Active Substance: POLYETHYLENE GLYCOL 3350
     Indication: Product used for unknown indication
     Dosage: 17 GRAM ORAL POWDER PACKET, DISSOLVE 17 GRAMS (1 CAPFUL) IN 8 OZ OF WATER AND DRINK ONCE DAILY
     Route: 048
  7. fluticasone furoate 200 mcg-vilanterol 25 mcg/dose [Concomitant]
     Indication: Product used for unknown indication
     Dosage: 200MCG/25MCG/DOSE; 1 PUFF(S) INHALATION EVERY DAY
     Route: 055
  8. NIFEDIPINE [Concomitant]
     Active Substance: NIFEDIPINE
     Indication: Product used for unknown indication
     Dosage: EXTENDED RELEASE
     Route: 048
  9. SINGULAIR [Concomitant]
     Active Substance: MONTELUKAST SODIUM
     Indication: Product used for unknown indication
     Route: 048
  10. Dulera 200 mcg-5 mcg/actuation HFA aerosol inhale [Concomitant]
     Indication: Product used for unknown indication
     Dosage: 200 MCG-5 MCG/ACTUATION HFA AEROSOL INHALER, 2 PUFF(S) INH BID?RINSE MOUTH AFTER USE
     Route: 055
  11. PROAIR HFA [Concomitant]
     Active Substance: ALBUTEROL SULFATE
     Indication: Dyspnoea
     Dosage: 90 MCG/ACTUATION AEROSOL INHALER, INHALE 2 PUFFS BY MOUTHEVERY 4 TO 6 HOURS AS NEEDED
     Route: 055
  12. FLOMAX [Concomitant]
     Active Substance: TAMSULOSIN HYDROCHLORIDE
     Indication: Product used for unknown indication
     Route: 048
  13. One Touch Test strips [Concomitant]
     Indication: Product used for unknown indication
     Dosage: USE FOR TESTING TWICE A DAY 1 CHEMSTRIP

REACTIONS (1)
  - Fournier^s gangrene [Unknown]
